FAERS Safety Report 4519045-6 (Version None)
Quarter: 2004Q4

REPORT INFORMATION
  Report Type: 
  Country: None (occurrence: None)
  Receive Date: 20041201
  Receipt Date: 20041118
  Transmission Date: 20050328
  Serious: Yes (Hospitalization, Other)
  Sender: FDA-Public Use
  Company Number: 2004075233

PATIENT
  Sex: Male

DRUGS (6)
  1. ATARAX [Suspect]
     Indication: ILL-DEFINED DISORDER
     Dosage: 50 MG (50 MG, 1 IN 1 D), ORAL
     Route: 048
     Dates: start: 20040901, end: 20040906
  2. TRIMEBUTINE (TRIMEBUTINE) [Suspect]
     Indication: ILL-DEFINED DISORDER
     Dosage: 600 MG (200 MG, 3 IN 1 D), ORAL
     Route: 048
     Dates: start: 20040830
  3. GELOX (ALUMINIUM HYDROXIDE, ALUMINIUM SILICATE, MAGNESIUM HYDROXIDE) [Suspect]
     Indication: ILL-DEFINED DISORDER
     Dosage: (3 IN 1 D), ORAL
     Route: 048
     Dates: start: 20040902
  4. AMOXICILLIN [Suspect]
     Indication: ILL-DEFINED DISORDER
     Dosage: 3 GRAM (1 GRAM, 3 IN 1 D), ORAL
     Route: 048
     Dates: start: 20040827
  5. FLUOXETINE [Suspect]
     Indication: ILL-DEFINED DISORDER
     Dosage: 20 MG (20 MG, 1 IN 1 D), ORAL
     Route: 048
     Dates: end: 20040831
  6. SERENOA REPENS (SERENOA REPENS) [Suspect]
     Indication: ILL-DEFINED DISORDER
     Dosage: 320 MG (160 MG, 2 IN 1 D), ORAL
     Route: 048

REACTIONS (9)
  - AGITATION [None]
  - DELIRIUM [None]
  - DISORIENTATION [None]
  - EXCITABILITY [None]
  - LOGORRHOEA [None]
  - LYME DISEASE [None]
  - MANIA [None]
  - MENTAL DISORDER [None]
  - SEROLOGY POSITIVE [None]
